FAERS Safety Report 18222493 (Version 1)
Quarter: 2020Q3

REPORT INFORMATION
  Report Type: Spontaneous
  Country: FR (occurrence: FR)
  Receive Date: 20200902
  Receipt Date: 20200902
  Transmission Date: 20201103
  Serious: Yes (Other)
  Sender: FDA-Public Use
  Company Number: FR-009507513-2008FRA014071

PATIENT
  Age: 92 Year
  Sex: Female

DRUGS (3)
  1. ZITHROMAX [Suspect]
     Active Substance: AZITHROMYCIN DIHYDRATE
     Indication: CORONAVIRUS INFECTION
     Dosage: 250 MILLIGRAM, QD
     Route: 048
     Dates: start: 20200729, end: 20200802
  2. PLAQUENIL [Suspect]
     Active Substance: HYDROXYCHLOROQUINE SULFATE
     Indication: CORONAVIRUS INFECTION
     Dosage: 600 MILLIGRAM, QD
     Route: 048
     Dates: start: 20200730, end: 20200809
  3. INVANZ [Suspect]
     Active Substance: ERTAPENEM SODIUM
     Indication: CORONAVIRUS INFECTION
     Dosage: 1 GRAM
     Route: 041
     Dates: start: 20200729, end: 20200804

REACTIONS (2)
  - Neutropenia [Recovered/Resolved]
  - Thrombocytopenia [Recovered/Resolved]

NARRATIVE: CASE EVENT DATE: 20200801
